FAERS Safety Report 7954316-2 (Version None)
Quarter: 2011Q4

REPORT INFORMATION
  Report Type: 
  Country: None (occurrence: None)
  Receive Date: 20111202
  Receipt Date: 20111201
  Transmission Date: 20120403
  Serious: No
  Sender: FDA-Public Use
  Company Number: US-B.I. PHARMACEUTICALS,INC./RIDGEFIELD-2011-BP-27217BP

PATIENT
  Age: 69 Year
  Sex: Female

DRUGS (8)
  1. 4 DIFFERENT MEDICATIONS [Concomitant]
     Indication: HYPERTENSION
     Route: 048
  2. ASPIRIN [Concomitant]
     Indication: ARTHRITIS
     Route: 048
  3. SYNTHROID [Concomitant]
     Indication: BASEDOW'S DISEASE
     Route: 048
  4. NITROGLYCERIN [Concomitant]
     Indication: CHEST PAIN
     Route: 048
  5. SPIRIVA [Suspect]
     Indication: EMPHYSEMA
     Dosage: 18 MCG
     Route: 055
     Dates: start: 20061201
  6. GLIMEPIRIDE [Concomitant]
     Indication: DIABETES MELLITUS
     Route: 048
  7. RENAL CAPS [Concomitant]
     Indication: RENAL FAILURE
     Route: 048
  8. VICODIN [Concomitant]
     Indication: ARTHRITIS
     Route: 048

REACTIONS (2)
  - DYSPNOEA [None]
  - KIDNEY INFECTION [None]
